FAERS Safety Report 6055194-1 (Version None)
Quarter: 2009Q1

REPORT INFORMATION
  Report Type: 
  Country: None (occurrence: None)
  Receive Date: 20090122
  Receipt Date: 20090106
  Transmission Date: 20090719
  Serious: Yes (Hospitalization)
  Sender: FDA-Public Use
  Company Number: 8041222

PATIENT
  Age: 54 Year
  Sex: Male

DRUGS (12)
  1. KEPPRA [Suspect]
     Dosage: 1000 MG 2/D PO
     Route: 048
     Dates: start: 20071201, end: 20080301
  2. PROGRAF [Concomitant]
  3. LASIX [Concomitant]
  4. RAPAMUNE [Concomitant]
  5. PREDNISONE [Concomitant]
  6. ASPIRIN [Concomitant]
  7. NIFEDIPINE [Concomitant]
  8. CATAPRES [Concomitant]
  9. METOPROLOL TARTRATE [Concomitant]
  10. VITAMIN D [Concomitant]
  11. ZETIA [Concomitant]
  12. LIPITOR [Concomitant]

REACTIONS (1)
  - TREMOR [None]
